FAERS Safety Report 16940369 (Version 2)
Quarter: 2019Q4

REPORT INFORMATION
  Report Type: Spontaneous
  Country: US (occurrence: US)
  Receive Date: 20191021
  Receipt Date: 20191104
  Transmission Date: 20200122
  Serious: Yes (Disabling, Other)
  Sender: FDA-Public Use
  Company Number: US-009507513-1811USA011418

PATIENT
  Sex: Male
  Weight: 80.73 kg

DRUGS (3)
  1. ZOSTAVAX [Suspect]
     Active Substance: VARICELLA-ZOSTER VIRUS STRAIN OKA/MERCK LIVE ANTIGEN
     Indication: PROPHYLAXIS
     Dosage: .65 MILLILITER
     Route: 065
     Dates: start: 20140421
  2. ZOSTAVAX [Suspect]
     Active Substance: VARICELLA-ZOSTER VIRUS STRAIN OKA/MERCK LIVE ANTIGEN
     Indication: ROUTINE HEALTH MAINTENANCE
  3. STERILE DILUENT (WATER) [Suspect]
     Active Substance: WATER
     Dosage: UNK
     Dates: start: 20140421, end: 20140421

REACTIONS (10)
  - Nervous system disorder [Unknown]
  - Head discomfort [Not Recovered/Not Resolved]
  - Fatigue [Unknown]
  - Mastoid disorder [Unknown]
  - Facial paralysis [Recovering/Resolving]
  - Asthenia [Not Recovered/Not Resolved]
  - Herpes zoster oticus [Recovering/Resolving]
  - Post herpetic neuralgia [Unknown]
  - Irritability [Not Recovered/Not Resolved]
  - Blindness [Unknown]

NARRATIVE: CASE EVENT DATE: 201502
